FAERS Safety Report 17240173 (Version 1)
Quarter: 2020Q1

REPORT INFORMATION
  Report Type: Spontaneous
  Country: US (occurrence: US)
  Receive Date: 20200107
  Receipt Date: 20200107
  Transmission Date: 20200409
  Serious: Yes (Hospitalization, Other)
  Sender: FDA-Public Use
  Company Number: US-LUPIN PHARMACEUTICALS INC.-2019-02170

PATIENT
  Age: 50 Year
  Sex: Male

DRUGS (3)
  1. CEFDINIR. [Suspect]
     Active Substance: CEFDINIR
     Indication: PERINEPHRIC ABSCESS
  2. CEFDINIR. [Suspect]
     Active Substance: CEFDINIR
     Indication: PYELONEPHRITIS
     Dosage: UNK
     Route: 048
  3. CEFDINIR. [Suspect]
     Active Substance: CEFDINIR
     Indication: SEPSIS

REACTIONS (1)
  - Hepatitis cholestatic [Recovered/Resolved]
